FAERS Safety Report 4957920-9 (Version None)
Quarter: 2006Q1

REPORT INFORMATION
  Report Type: 
  Country: None (occurrence: None)
  Receive Date: 20060324
  Receipt Date: 20060310
  Transmission Date: 20060701
  Serious: Yes (Hospitalization)
  Sender: FDA-Public Use
  Company Number: 13703

PATIENT
  Age: 54 Year
  Sex: Female
  Weight: 88 kg

DRUGS (5)
  1. PACLITAXEL [Suspect]
     Indication: OVARIAN CANCER
     Dosage: 350 MG IV
     Route: 042
     Dates: start: 20060221
  2. CARBOPLATIN [Concomitant]
  3. FORTECORTIN [Concomitant]
  4. DEXCHLORPHENIRAMIN [Concomitant]
  5. ZANTAC [Concomitant]

REACTIONS (2)
  - HYPERSENSITIVITY [None]
  - INFUSION RELATED REACTION [None]
